FAERS Safety Report 5811791-7 (Version None)
Quarter: 2008Q3

REPORT INFORMATION
  Report Type: 
  Country: None (occurrence: None)
  Receive Date: 20080715
  Receipt Date: 20080715
  Transmission Date: 20090109
  Serious: Yes (Death)
  Sender: FDA-Public Use
  Company Number: None

PATIENT
  Sex: Male
  Weight: 81.8 kg

DRUGS (2)
  1. FLUDARABINE PHOSPHATE [Suspect]
     Indication: BONE MARROW CONDITIONING REGIMEN
     Dosage: 60 DAILY IV DRIP
     Route: 041
     Dates: start: 20080425, end: 20080429
  2. THIOTEPA [Suspect]
     Dosage: 410 DAILY IV DRIP
     Route: 041
     Dates: start: 20080425, end: 20080426

REACTIONS (4)
  - DIZZINESS [None]
  - NAUSEA [None]
  - RENAL FAILURE ACUTE [None]
  - VENOOCCLUSIVE LIVER DISEASE [None]
